FAERS Safety Report 17830684 (Version 2)
Quarter: 2020Q2

REPORT INFORMATION
  Report Type: Spontaneous
  Country: BE (occurrence: BE)
  Receive Date: 20200527
  Receipt Date: 20200611
  Transmission Date: 20200714
  Serious: Yes (Disabling)
  Sender: FDA-Public Use
  Company Number: BE-009507513-2005BEL007322

PATIENT
  Age: 48 Year
  Sex: Female

DRUGS (12)
  1. IMPLANON [Suspect]
     Active Substance: ETONOGESTREL
     Dosage: UNK
  2. YASMINELLE [Interacting]
     Active Substance: DROSPIRENONE
     Dosage: UNK
  3. CERAZETTE (DESOGESTREL) [Interacting]
     Active Substance: DESOGESTREL
     Dosage: UNK
  4. ORTHO EVRA [Interacting]
     Active Substance: ETHINYL ESTRADIOL\NORELGESTROMIN
  5. LYRICA [Interacting]
     Active Substance: PREGABALIN
     Indication: PAIN
     Dosage: VARIABLE BETWEEN 50 MG AND 150 MG
  6. PRIMOLUT N [Interacting]
     Active Substance: NORETHINDRONE
     Dosage: UNK
  7. DIENOGEST [Interacting]
     Active Substance: DIENOGEST
     Dosage: UNK
  8. ZOELY [Interacting]
     Active Substance: ESTRADIOL\NOMEGESTROL ACETATE
     Dosage: UNK
  9. LUTENYL [Interacting]
     Active Substance: NOMEGESTROL ACETATE
     Dosage: UNK
  10. QLAIRA [Interacting]
     Active Substance: DIENOGEST\ESTRADIOL VALERATE
     Dosage: UNK
  11. MICROGYNON 30 [Interacting]
     Active Substance: ETHINYL ESTRADIOL\LEVONORGESTREL ACETATE
     Dosage: UNK
  12. ORTHO EVRA [Interacting]
     Active Substance: ETHINYL ESTRADIOL\NORELGESTROMIN
     Dosage: UNK

REACTIONS (2)
  - Drug ineffective [Not Recovered/Not Resolved]
  - Drug interaction [Not Recovered/Not Resolved]
